FAERS Safety Report 9104154 (Version 1)
Quarter: 2013Q1

REPORT INFORMATION
  Report Type: Spontaneous
  Country: BR (occurrence: BR)
  Receive Date: 20130219
  Receipt Date: 20130219
  Transmission Date: 20140127
  Serious: Yes (Other)
  Sender: FDA-Public Use
  Company Number: PHHY2012BR018056

PATIENT
  Age: 89 Year
  Sex: Female
  Weight: 50 kg

DRUGS (9)
  1. EXELON [Suspect]
     Indication: DEMENTIA ALZHEIMER^S TYPE
     Dosage: 1.5 MG, QD
     Route: 048
  2. EXELON [Suspect]
     Dosage: 3 MG, QD
     Route: 048
  3. EXELON [Suspect]
     Dosage: 3 MG, BID
     Route: 048
  4. OSCAL D [Concomitant]
     Indication: BONE DISORDER
     Dosage: 1 DF, AT LUNCH
  5. OMEPRAZOLE [Concomitant]
     Indication: ABDOMINAL DISCOMFORT
     Dosage: 20 MG, 1 TABLET FASTING
  6. CITALOPRAM [Concomitant]
  7. ANTIDEPRESSANTS [Concomitant]
     Dosage: 1 DF, QHS
  8. FRESH TEARS LIQUIGEL [Concomitant]
     Indication: DRY EYE
     Dosage: 1 DRP IN EACH EYE, DAILY
  9. CITARA [Concomitant]
     Indication: DEMENTIA ALZHEIMER^S TYPE
     Dosage: 1 DF (AT NIGHT), QD
     Route: 048

REACTIONS (6)
  - Loss of consciousness [Recovered/Resolved]
  - Hallucination [Unknown]
  - Drug intolerance [Unknown]
  - Malaise [Unknown]
  - Vomiting [Recovered/Resolved]
  - Abdominal pain upper [Recovered/Resolved]
